FAERS Safety Report 19662835 (Version 1)
Quarter: 2021Q3

REPORT INFORMATION
  Report Type: Spontaneous
  Country: CN (occurrence: CN)
  Receive Date: 20210805
  Receipt Date: 20210805
  Transmission Date: 20211014
  Serious: Yes (Hospitalization, Other)
  Sender: FDA-Public Use
  Company Number: CN-009507513-2108CHN000548

PATIENT
  Age: 46 Year
  Sex: Female

DRUGS (3)
  1. KEYTRUDA [Suspect]
     Active Substance: PEMBROLIZUMAB
     Indication: COLON CANCER
     Dosage: 200MG QD D1
     Route: 042
     Dates: start: 20210603, end: 20210603
  2. ELUNATE [Suspect]
     Active Substance: FRUQUINTINIB
     Indication: COLON CANCER
     Dosage: 3 MG, D1?21
     Route: 048
     Dates: start: 20210603, end: 20210624
  3. SODIUM CHLORIDE. [Concomitant]
     Active Substance: SODIUM CHLORIDE
     Indication: COLON CANCER
     Dosage: 100 MILLILITER, QD
     Route: 042
     Dates: start: 20210603, end: 20210603

REACTIONS (1)
  - Haemoglobin decreased [Recovering/Resolving]

NARRATIVE: CASE EVENT DATE: 20210624
